FAERS Safety Report 24300640 (Version 2)
Quarter: 2024Q4

REPORT INFORMATION
  Report Type: Report from Study
  Country: US (occurrence: US)
  Receive Date: 20240910
  Receipt Date: 20241022
  Transmission Date: 20250115
  Serious: Yes (Death, Other)
  Sender: ALEXION PHARMACEUTICALS
  Company Number: 2024A202570

PATIENT

DRUGS (1)
  1. BREZTRI [Suspect]
     Active Substance: BUDESONIDE\FORMOTEROL\GLYCOPYRROLATE

REACTIONS (1)
  - Death [Fatal]
